FAERS Safety Report 18568357 (Version 2)
Quarter: 2024Q2

REPORT INFORMATION
  Report Type: Spontaneous
  Country: CA (occurrence: CA)
  Receive Date: 20201202
  Receipt Date: 20240510
  Transmission Date: 20240716
  Serious: Yes (Hospitalization)
  Sender: FDA-Public Use
  Company Number: CA-UNITED THERAPEUTICS-UNT-2020-018658

PATIENT
  Age: 9 Year
  Sex: Male

DRUGS (2)
  1. REMODULIN [Suspect]
     Active Substance: TREPROSTINIL
     Indication: Pulmonary arterial hypertension
     Dosage: APPROXIMATELY 0.092 ?G/KG, CONTINUING
     Route: 058
  2. REMODULIN [Suspect]
     Active Substance: TREPROSTINIL
     Dosage: UNK, CONTINUING
     Route: 058
     Dates: start: 20191219, end: 2020

REACTIONS (7)
  - Syncope [Recovered/Resolved]
  - Infusion site haematoma [Recovered/Resolved]
  - Subcutaneous drug absorption impaired [Unknown]
  - Echocardiogram abnormal [Unknown]
  - Infection [Unknown]
  - Right ventricular dysfunction [Not Recovered/Not Resolved]
  - Device maintenance issue [Recovered/Resolved]

NARRATIVE: CASE EVENT DATE: 20201101
